FAERS Safety Report 13033829 (Version 3)
Quarter: 2025Q4

REPORT INFORMATION
  Report Type: Spontaneous
  Country: US (occurrence: US)
  Receive Date: 20161216
  Receipt Date: 20251017
  Transmission Date: 20260118
  Serious: Yes (Life-Threatening, Other)
  Sender: AUROBINDO
  Company Number: US-AUROBINDO-AUR-APL-2016-15248

PATIENT
  Age: 46 Year
  Sex: Female

DRUGS (9)
  1. VALACYCLOVIR HYDROCHLORIDE [Suspect]
     Active Substance: VALACYCLOVIR HYDROCHLORIDE
     Indication: Prophylaxis
     Dosage: 1000 MG, UNK
     Route: 065
     Dates: start: 2015
  2. CAPECITABINE [Suspect]
     Active Substance: CAPECITABINE
     Indication: ACTH-producing pituitary tumour
     Dosage: 3000 MILLIGRAM, ONCE A DAY
     Route: 065
     Dates: start: 201312
  3. TEMOZOLOMIDE [Suspect]
     Active Substance: TEMOZOLOMIDE
     Indication: ACTH-producing pituitary tumour
     Dosage: 400 MILLIGRAM, ONCE A DAY (DAY 10-14)
     Route: 065
     Dates: start: 201312
  4. OCTREOTIDE [Concomitant]
     Active Substance: OCTREOTIDE
     Indication: Product used for unknown indication
     Dosage: 60 MILLIGRAM
     Route: 065
     Dates: start: 2013
  5. OCTREOTIDE [Concomitant]
     Active Substance: OCTREOTIDE
     Dosage: 30 MILLIGRAM
     Route: 065
     Dates: start: 2013
  6. HYDROCORTISONE [Concomitant]
     Active Substance: HYDROCORTISONE
     Indication: Product used for unknown indication
     Dosage: 10 MG, TWO TIMES A DAY
     Route: 065
     Dates: start: 201109
  7. DESMOPRESSIN [Concomitant]
     Active Substance: DESMOPRESSIN
     Indication: Diabetes insipidus
     Dosage: UNK
     Route: 065
     Dates: start: 2011
  8. EVEROLIMUS [Concomitant]
     Active Substance: EVEROLIMUS
     Indication: Product used for unknown indication
     Dosage: 7.5 MILLIGRAM
     Route: 065
     Dates: start: 2015
  9. EVEROLIMUS [Concomitant]
     Active Substance: EVEROLIMUS
     Dosage: 10 MILLIGRAM
     Route: 065
     Dates: start: 2015

REACTIONS (3)
  - Drug ineffective [Unknown]
  - Thrombocytopenia [Unknown]
  - Overdose [Unknown]
